FAERS Safety Report 9913364 (Version 1)
Quarter: 2014Q1

REPORT INFORMATION
  Report Type: Spontaneous
  Country: US (occurrence: None)
  Receive Date: 20140218
  Receipt Date: 20140218
  Transmission Date: 20141002
  Serious: Yes (Hospitalization)
  Sender: FDA-Public Use
  Company Number: None

PATIENT
  Age: 62 Year
  Sex: Male
  Weight: 68 kg

DRUGS (15)
  1. RIBAVIRIN [Suspect]
     Indication: HEPATITIS C
     Route: 048
  2. SOFOSBUVIR [Suspect]
     Indication: HEPATITIS C
     Route: 048
  3. DILTIAZEM [Concomitant]
  4. ENTECAVIR (HEP B) [Concomitant]
  5. LEVOFLOXACIN [Concomitant]
  6. LEVOFLOXACIN [Concomitant]
  7. HYDRALAZINE [Concomitant]
  8. ESCITALOPRAM [Concomitant]
  9. MIRTAZIPINE [Concomitant]
  10. METRONIDAZOLE [Concomitant]
  11. TACROLIMUS [Concomitant]
  12. TAMSULOSIN [Concomitant]
  13. CHLORPRMAZINE [Concomitant]
  14. URSIDIOL [Concomitant]
  15. MORPHINE [Concomitant]

REACTIONS (3)
  - Haemoglobin decreased [None]
  - Haematocrit decreased [None]
  - Red blood cell count decreased [None]
